FAERS Safety Report 6165517-0 (Version None)
Quarter: 2009Q2

REPORT INFORMATION
  Report Type: 
  Country: None (occurrence: None)
  Receive Date: 20090423
  Receipt Date: 20090416
  Transmission Date: 20091009
  Serious: Yes (Other)
  Sender: FDA-Public Use
  Company Number: BE-ABBOTT-09P-013-0565601-00

PATIENT
  Age: 77 Year
  Sex: Female

DRUGS (7)
  1. DEPAKENE [Suspect]
     Indication: EPILEPSY
     Route: 048
     Dates: start: 20060101, end: 20080513
  2. DEPAKENE [Suspect]
     Dates: start: 20080808
  3. KEPPRA [Concomitant]
     Indication: EPILEPSY
     Dates: start: 20080513, end: 20080801
  4. SINGULAIR [Concomitant]
     Indication: HYPERSENSITIVITY
  5. PANTOZOL [Concomitant]
     Indication: DRUG USE FOR UNKNOWN INDICATION
  6. BIO-MAGNESIUM [Concomitant]
     Indication: DRUG USE FOR UNKNOWN INDICATION
  7. SALT CAPSULES [Concomitant]
     Indication: DRUG USE FOR UNKNOWN INDICATION

REACTIONS (9)
  - DRUG WITHDRAWAL CONVULSIONS [None]
  - HYPERSOMNIA [None]
  - HYPERVENTILATION [None]
  - LEUKOENCEPHALOPATHY [None]
  - MENTAL IMPAIRMENT [None]
  - PLATELET COUNT DECREASED [None]
  - REBOUND EFFECT [None]
  - STARING [None]
  - SYNCOPE [None]
